FAERS Safety Report 16957736 (Version 2)
Quarter: 2022Q4

REPORT INFORMATION
  Report Type: Spontaneous
  Country: US (occurrence: US)
  Receive Date: 20191024
  Receipt Date: 20221109
  Transmission Date: 20230113
  Serious: Yes (Hospitalization)
  Sender: FDA-Public Use
  Company Number: US-VERTEX PHARMACEUTICALS-2019-010264

PATIENT
  Age: 35 Year
  Sex: Female

DRUGS (9)
  1. SYMDEKO [Suspect]
     Active Substance: IVACAFTOR\TEZACAFTOR
     Indication: Cystic fibrosis
     Dosage: 01 TABLET, BID (100MG /150MG IN MORNING AND 150MG IN EVENING)
     Route: 048
     Dates: start: 20181005, end: 20191107
  2. ADVAIR HFA [Concomitant]
     Active Substance: FLUTICASONE PROPIONATE\SALMETEROL XINAFOATE
  3. AZELSTINE [Concomitant]
  4. FLUTICASONE [Concomitant]
     Active Substance: FLUTICASONE
  5. LORAZEPAM [Concomitant]
     Active Substance: LORAZEPAM
  6. METHOCARBAMOL [Concomitant]
     Active Substance: METHOCARBAMOL
  7. MONTELUKAST [Concomitant]
     Active Substance: MONTELUKAST SODIUM
  8. TRAMADOL [Concomitant]
     Active Substance: TRAMADOL
  9. CAYSTON [Concomitant]
     Active Substance: AZTREONAM

REACTIONS (1)
  - Pneumonia [Unknown]

NARRATIVE: CASE EVENT DATE: 20191001
